FAERS Safety Report 7081213-X (Version None)
Quarter: 2010Q4

REPORT INFORMATION
  Report Type: 
  Country: None (occurrence: None)
  Receive Date: 20101103
  Receipt Date: 20101025
  Transmission Date: 20110411
  Serious: Yes (Hospitalization)
  Sender: FDA-Public Use
  Company Number: FR-ROCHE-737170

PATIENT
  Age: 27 Year
  Sex: Female

DRUGS (1)
  1. ROACTEMRA [Suspect]
     Dosage: FREQUENCY: PER CYCLE; FORM: INFUSION
     Route: 042
     Dates: start: 20100903, end: 20100920

REACTIONS (3)
  - CHILLS [None]
  - DYSKINESIA [None]
  - PYREXIA [None]
